FAERS Safety Report 7690192-3 (Version None)
Quarter: 2011Q3

REPORT INFORMATION
  Report Type: 
  Country: None (occurrence: None)
  Receive Date: 20110811
  Receipt Date: 20090817
  Transmission Date: 20111222
  Serious: Yes (Hospitalization)
  Sender: FDA-Public Use
  Company Number: 2009SP021088

PATIENT
  Age: 24 Year
  Sex: Female
  Weight: 106.5953 kg

DRUGS (2)
  1. CELEXA [Concomitant]
  2. NUVARING [Suspect]
     Indication: CONTRACEPTION
     Dates: start: 20030601, end: 20040801

REACTIONS (16)
  - ASTHMA [None]
  - ALANINE AMINOTRANSFERASE INCREASED [None]
  - PULMONARY EMBOLISM [None]
  - DEEP VEIN THROMBOSIS [None]
  - ROAD TRAFFIC ACCIDENT [None]
  - BILE DUCT STONE [None]
  - CHOLECYSTITIS ACUTE [None]
  - PREMATURE RUPTURE OF MEMBRANES [None]
  - EMPHYSEMA [None]
  - OBSTRUCTIVE AIRWAYS DISORDER [None]
  - PREGNANCY [None]
  - PREMATURE LABOUR [None]
  - DYSPNOEA EXERTIONAL [None]
  - MATERNAL EXPOSURE BEFORE PREGNANCY [None]
  - PROTHROMBIN TIME SHORTENED [None]
  - ASPARTATE AMINOTRANSFERASE INCREASED [None]
